FAERS Safety Report 4647046-6 (Version None)
Quarter: 2005Q2

REPORT INFORMATION
  Report Type: 
  Country: None (occurrence: None)
  Receive Date: 20050331
  Receipt Date: 20041206
  Transmission Date: 20051028
  Serious: No
  Sender: FDA-Public Use
  Company Number: 04P-163-0268034-00

PATIENT
  Age: 77 Year
  Sex: Female
  Weight: 86.1834 kg

DRUGS (11)
  1. HUMIRA [Suspect]
     Indication: RHEUMATOID ARTHRITIS
     Dosage: 40 MG, 1 IN 2 WK, SUBCUTANEOUS
     Route: 058
     Dates: start: 20040520, end: 20041206
  2. GLIPIZIDE [Concomitant]
  3. PIOGLITAZONE HCL [Concomitant]
  4. IRBESARTAN [Concomitant]
  5. TOPROL-XL [Concomitant]
  6. AMLODIPINE BESYLATE [Concomitant]
  7. TRILEPTAL [Concomitant]
  8. METHOTREXATE [Concomitant]
  9. BUCINDOLOL HYDROCHLORIDE [Concomitant]
  10. INFLIXIMAB [Concomitant]
  11. METHOTREXATE [Concomitant]

REACTIONS (6)
  - INJECTION SITE HAEMORRHAGE [None]
  - INJECTION SITE IRRITATION [None]
  - INJECTION SITE PRURITUS [None]
  - INJECTION SITE RASH [None]
  - PAIN IN EXTREMITY [None]
  - TRIGGER FINGER [None]
